FAERS Safety Report 8473771-5 (Version None)
Quarter: 2012Q2

REPORT INFORMATION
  Report Type: 
  Country: None (occurrence: None)
  Receive Date: 20120628
  Receipt Date: 20111101
  Transmission Date: 20120825
  Serious: Yes (Death)
  Sender: FDA-Public Use
  Company Number: US-MYLANLABS-2011S1022700

PATIENT
  Age: 84 Year
  Sex: Female

DRUGS (12)
  1. VICODIN [Concomitant]
  2. ASPIRIN [Concomitant]
  3. LANTUS [Concomitant]
  4. INSULIN [Concomitant]
  5. NITROSTAT [Concomitant]
  6. ALBUTEROL [Concomitant]
  7. LOPRESSOR [Concomitant]
  8. ACETAMINOPHEN [Concomitant]
  9. ZOLOFT [Concomitant]
  10. NAMENDA [Concomitant]
  11. CLOZAPINE [Suspect]
     Route: 048
  12. OMEPRAZOLE [Concomitant]

REACTIONS (1)
  - DEATH [None]
